FAERS Safety Report 6259990-7 (Version None)
Quarter: 2009Q3

REPORT INFORMATION
  Report Type: 
  Country: None (occurrence: None)
  Receive Date: 20090708
  Receipt Date: 20090701
  Transmission Date: 20100115
  Serious: Yes (Other)
  Sender: FDA-Public Use
  Company Number: US-ASTRAZENECA-2009UW18442

PATIENT
  Age: 63 Year
  Sex: Female
  Weight: 77.1 kg

DRUGS (5)
  1. TOPROL-XL [Suspect]
     Route: 048
     Dates: start: 19990101
  2. ATIVAN [Concomitant]
  3. NORVASC [Concomitant]
  4. PREVACID [Concomitant]
  5. PRAVACHOL [Concomitant]

REACTIONS (1)
  - THYROID CANCER [None]
